FAERS Safety Report 16572518 (Version 3)
Quarter: 2019Q3

REPORT INFORMATION
  Report Type: Spontaneous
  Country: US (occurrence: US)
  Receive Date: 20190715
  Receipt Date: 20190806
  Transmission Date: 20191004
  Serious: No
  Sender: FDA-Public Use
  Company Number: US-SA-2019SA120025

PATIENT
  Age: 62 Year
  Sex: Female
  Weight: 58 kg

DRUGS (1)
  1. PRALUENT [Suspect]
     Active Substance: ALIROCUMAB
     Dosage: 150 MG, BIM
     Dates: start: 20190426, end: 20190719

REACTIONS (11)
  - Peripheral vascular disorder [Unknown]
  - Muscle spasms [Recovering/Resolving]
  - Productive cough [Unknown]
  - Oedema peripheral [Unknown]
  - Crying [Unknown]
  - Pain in extremity [Unknown]
  - Skin discolouration [Recovering/Resolving]
  - Product use issue [Unknown]
  - Condition aggravated [Recovering/Resolving]
  - Gait disturbance [Unknown]
  - Hyperhidrosis [Unknown]

NARRATIVE: CASE EVENT DATE: 2019
